FAERS Safety Report 14750903 (Version 2)
Quarter: 2018Q2

REPORT INFORMATION
  Report Type: Spontaneous
  Country: US (occurrence: US)
  Receive Date: 20180412
  Receipt Date: 20180420
  Transmission Date: 20180711
  Serious: Yes (Life-Threatening, Hospitalization, Disabling, Other)
  Sender: FDA-Public Use
  Company Number: US-BAYER-200420331BWH

PATIENT
  Age: 84 Year
  Sex: Male

DRUGS (4)
  1. AVELOX [Suspect]
     Active Substance: MOXIFLOXACIN HYDROCHLORIDE
     Indication: MENTAL STATUS CHANGES
     Route: 042
     Dates: start: 20040521, end: 20040531
  2. METOPROLOL. [Concomitant]
     Active Substance: METOPROLOL
  3. CARDIZEM [Concomitant]
     Active Substance: DILTIAZEM HYDROCHLORIDE
  4. AVELOX [Suspect]
     Active Substance: MOXIFLOXACIN HYDROCHLORIDE
     Indication: PNEUMONIA

REACTIONS (11)
  - Torsade de pointes [Unknown]
  - Mental status changes [None]
  - Cardiac arrest [Unknown]
  - Atrial fibrillation [None]
  - Ventricular tachycardia [Unknown]
  - Cardiac failure congestive [None]
  - Hypoxic-ischaemic encephalopathy [Unknown]
  - Coma [Not Recovered/Not Resolved]
  - Apallic syndrome [None]
  - Pneumonia [None]
  - Myocardial infarction [None]

NARRATIVE: CASE EVENT DATE: 20040531
